FAERS Safety Report 10141937 (Version 2)
Quarter: 2014Q2

REPORT INFORMATION
  Report Type: Spontaneous
  Country: JP (occurrence: JP)
  Receive Date: 20140429
  Receipt Date: 20140429
  Transmission Date: 20141212
  Serious: Yes (Death, Other)
  Sender: FDA-Public Use
  Company Number: JP-PFIZER INC-2014068027

PATIENT
  Age: 89 Year
  Sex: Female

DRUGS (3)
  1. NOVASTAN [Suspect]
     Dosage: 1 AMPOULE INTO THE CIRCUIT, AFTER THE EXTRACORPOREAL CIRCULATION INITIATION: 2.5 AMPOULES PER HOUR
     Route: 051
     Dates: start: 20140218, end: 20140218
  2. NOVASTAN [Suspect]
     Dosage: 1.5 AMPOULES PER HOUR
     Route: 051
     Dates: start: 20140225
  3. HEPARIN SODIUM [Concomitant]
     Dosage: UNK
     Route: 051

REACTIONS (2)
  - Death [Fatal]
  - Haemorrhage [Recovered/Resolved]
